FAERS Safety Report 10710784 (Version 2)
Quarter: 2015Q2

REPORT INFORMATION
  Report Type: Spontaneous
  Country: TR (occurrence: None)
  Receive Date: 20150112
  Receipt Date: 20150515
  Transmission Date: 20150821
  Serious: Yes (Life-Threatening)
  Sender: FDA-Public Use
  Company Number: FK201500056

PATIENT
  Age: 67 Year
  Sex: Male

DRUGS (2)
  1. FOLINIC ACID [Concomitant]
     Active Substance: LEUCOVORIN
  2. FLUOROURACIL (MANUFACTURER UNKNOWN) (FLUOROURACIL) (FLUOROURACIL) [Suspect]
     Active Substance: FLUOROURACIL
     Indication: GASTRIC CANCER
     Dosage: 1 IN 1 D

REACTIONS (7)
  - Vasospasm [None]
  - Coronary artery stenosis [None]
  - Coronary artery thrombosis [None]
  - Acute myocardial infarction [None]
  - Arteriosclerosis coronary artery [None]
  - Cardiotoxicity [None]
  - Arteriospasm coronary [None]
